FAERS Safety Report 8641914 (Version 4)
Quarter: 2013Q1

REPORT INFORMATION
  Report Type: Spontaneous
  Country: US (occurrence: US)
  Receive Date: 20120628
  Receipt Date: 20130308
  Transmission Date: 20140127
  Serious: Yes (Death, Hospitalization)
  Sender: FDA-Public Use
  Company Number: US-ELI_LILLY_AND_COMPANY-US201102005179

PATIENT
  Age: 79 None
  Sex: Female

DRUGS (21)
  1. FORTEO [Suspect]
     Indication: OSTEOPOROSIS
     Dosage: 20 UG, QD
     Route: 058
     Dates: start: 20110201
  2. FORTEO [Suspect]
     Dosage: 20 UG, QD
     Route: 058
  3. FORTEO [Suspect]
     Dosage: 20 UG, QD
     Route: 058
  4. FORTEO [Suspect]
     Dosage: 20 UG, QD
     Route: 058
     Dates: end: 20110426
  5. FORTEO [Suspect]
     Dosage: 20 UG, QD
     Route: 058
  6. FORTEO [Suspect]
     Dosage: 20 UG, QD
     Route: 058
  7. FORTEO [Suspect]
     Dosage: 20 UG, QD
     Route: 058
  8. FORTEO [Suspect]
     Dosage: 20 UG, QD
     Route: 058
     Dates: start: 20121004, end: 20121101
  9. CYMBALTA [Concomitant]
     Indication: DEPRESSION
     Dosage: 30 MG, QD
     Route: 048
     Dates: start: 201106
  10. VITAMIN D [Concomitant]
     Dosage: 2000 IU, QD
  11. WARFARIN [Concomitant]
     Indication: ATRIAL FIBRILLATION
     Dosage: 4 MG, UNKNOWN
  12. WARFARIN [Concomitant]
     Dosage: 5 MG, UNKNOWN
  13. WARFARIN [Concomitant]
     Dosage: 6 MG, UNKNOWN
  14. METOPROLOL [Concomitant]
     Indication: ATRIAL FIBRILLATION
     Dosage: 25 MG, BID
     Route: 048
  15. PRIMIDONE [Concomitant]
     Dosage: 50 MG, UNK
     Route: 048
     Dates: start: 20110404
  16. COUMADIN [Concomitant]
     Indication: ATRIAL FIBRILLATION
     Dosage: UNK UNK, QD
     Dates: start: 20121218
  17. COUMADIN [Concomitant]
     Dosage: UNK UNK, QD
     Dates: start: 20120528
  18. COUMADIN [Concomitant]
     Dosage: UNK, QD
     Dates: start: 20120116
  19. FUROSEMIDE [Concomitant]
     Indication: CARDIAC FAILURE CONGESTIVE
     Dosage: 20 MG, QD
     Route: 048
  20. LEVOTHYROXINE SODIUM [Concomitant]
     Indication: HYPOTHYROIDISM
     Dosage: 50 UG, QD
     Dates: start: 20121218
  21. NITROFURANTOIN MONOHYDRATE [Suspect]
     Indication: POLLAKIURIA
     Dosage: 100 MG, QD
     Route: 048
     Dates: start: 20121218

REACTIONS (15)
  - Coronary artery disease [Fatal]
  - Cardiac arrest [Fatal]
  - Gastric haemorrhage [Recovering/Resolving]
  - Abdominal pain upper [Unknown]
  - Dysgeusia [Unknown]
  - Injection site erythema [Unknown]
  - Muscular weakness [Unknown]
  - Fatigue [Not Recovered/Not Resolved]
  - Nasopharyngitis [Recovering/Resolving]
  - Sinusitis [Recovering/Resolving]
  - Tremor [Unknown]
  - Injection site pain [Unknown]
  - Back pain [Unknown]
  - Sciatic nerve injury [Unknown]
  - Medication error [Recovered/Resolved]
